FAERS Safety Report 4491057-0 (Version None)
Quarter: 2004Q4

REPORT INFORMATION
  Report Type: 
  Country: None (occurrence: None)
  Receive Date: 20041027
  Receipt Date: 20041011
  Transmission Date: 20050328
  Serious: Yes (Death)
  Sender: FDA-Public Use
  Company Number: L04-SWE-06630-23

PATIENT
  Age: 48 Year
  Sex: Female

DRUGS (8)
  1. CITALOPRAM [Suspect]
  2. PROPOXYPHENE HCL [Concomitant]
  3. PHENAZONE [Concomitant]
  4. MIANSERIN [Concomitant]
  5. DESMETHYLMIANSERIN [Concomitant]
  6. PROMETHAZINE [Concomitant]
  7. DESMETHYLPROMETHAZINE [Concomitant]
  8. ZOPICLONE [Concomitant]

REACTIONS (1)
  - DRUG TOXICITY [None]
